FAERS Safety Report 15223506 (Version 1)
Quarter: 2018Q3

REPORT INFORMATION
  Report Type: Spontaneous
  Country: BR (occurrence: BR)
  Receive Date: 20180731
  Receipt Date: 20180731
  Transmission Date: 20181010
  Serious: Yes (Other)
  Sender: FDA-Public Use
  Company Number: BR-TAKEDA-2018TUS023566

PATIENT
  Age: 36 Year
  Sex: Male

DRUGS (3)
  1. ENTYVIO [Suspect]
     Active Substance: VEDOLIZUMAB
     Indication: CROHN^S DISEASE
     Dosage: UNK
     Route: 042
     Dates: start: 2016
  2. MESALAMINE. [Concomitant]
     Active Substance: MESALAMINE
     Dosage: UNK
     Dates: start: 201803
  3. GLUTAMINE [Concomitant]
     Active Substance: GLUTAMINE
     Dosage: UNK
     Dates: start: 201803

REACTIONS (2)
  - Anal haemorrhage [Unknown]
  - Intestinal obstruction [Unknown]

NARRATIVE: CASE EVENT DATE: 201711
